FAERS Safety Report 8433134-5 (Version None)
Quarter: 2012Q2

REPORT INFORMATION
  Report Type: 
  Country: None (occurrence: None)
  Receive Date: 20120607
  Receipt Date: 20120529
  Transmission Date: 20120825
  Serious: Yes (Hospitalization)
  Sender: FDA-Public Use
  Company Number: ABR_00489_2012

PATIENT
  Sex: Female
  Weight: 84.369 kg

DRUGS (1)
  1. ERYTHROMYCIN [Suspect]
     Indication: UPPER RESPIRATORY TRACT INFECTION
     Dosage: (DF UNKNOWN)
     Dates: start: 19830101, end: 19830101

REACTIONS (1)
  - ERYTHEMA NODOSUM [None]
